FAERS Safety Report 15022804 (Version 1)
Quarter: 2018Q2

REPORT INFORMATION
  Report Type: Report from Study
  Country: US (occurrence: US)
  Receive Date: 20180618
  Receipt Date: 20180618
  Transmission Date: 20180711
  Serious: Yes (Hospitalization)
  Sender: FDA-Public Use
  Company Number: US-GILEAD-2018-0344185

PATIENT
  Age: 30 Year
  Sex: Female

DRUGS (2)
  1. AZTREONAM LYSINE [Suspect]
     Active Substance: AZTREONAM LYSINE
     Indication: CYSTIC FIBROSIS
     Dosage: UNK, TID, 28 DAYS ON, 28 DAYS OFF, ALTERNATE WITH TOBRA
     Route: 055
     Dates: start: 20120904
  2. TOBRA                              /00304201/ [Concomitant]
     Active Substance: TOBRAMYCIN

REACTIONS (1)
  - Condition aggravated [Unknown]

NARRATIVE: CASE EVENT DATE: 20180530
